FAERS Safety Report 14089126 (Version 4)
Quarter: 2017Q4

REPORT INFORMATION
  Report Type: Spontaneous
  Country: US (occurrence: US)
  Receive Date: 20171013
  Receipt Date: 20171117
  Transmission Date: 20180321
  Serious: Yes (Death, Hospitalization)
  Sender: FDA-Public Use
  Company Number: US-ELI_LILLY_AND_COMPANY-US201710004077

PATIENT
  Sex: Female
  Weight: 82.5 kg

DRUGS (1)
  1. ADCIRCA [Suspect]
     Active Substance: TADALAFIL
     Indication: PULMONARY ARTERIAL HYPERTENSION
     Dosage: 40 MG, DAILY
     Route: 048
     Dates: start: 201702

REACTIONS (7)
  - Post procedural complication [Fatal]
  - Gallstone ileus [Fatal]
  - Cholelithiasis [Unknown]
  - Malaise [Unknown]
  - Ureteric obstruction [Unknown]
  - Perihepatic abscess [Fatal]
  - Sepsis [Fatal]

NARRATIVE: CASE EVENT DATE: 2017
